FAERS Safety Report 19098835 (Version 2)
Quarter: 2021Q4

REPORT INFORMATION
  Report Type: Spontaneous
  Country: US (occurrence: None)
  Receive Date: 20210406
  Receipt Date: 20211123
  Transmission Date: 20220303
  Serious: Yes (Other)
  Sender: FDA-Public Use
  Company Number: 2021A231216

PATIENT
  Age: 48 Year
  Sex: Female

DRUGS (40)
  1. NEXIUM [Suspect]
     Active Substance: ESOMEPRAZOLE MAGNESIUM
     Indication: Gastrooesophageal reflux disease
     Route: 048
     Dates: start: 1999, end: 2012
  2. NEXIUM [Suspect]
     Active Substance: ESOMEPRAZOLE MAGNESIUM
     Indication: Gastrooesophageal reflux disease
     Route: 048
     Dates: start: 2001, end: 2016
  3. NEXIUM [Suspect]
     Active Substance: ESOMEPRAZOLE MAGNESIUM
     Indication: Gastrooesophageal reflux disease
     Dosage: GENERIC
     Route: 065
     Dates: start: 2015
  4. PRILOSEC [Suspect]
     Active Substance: OMEPRAZOLE MAGNESIUM
     Indication: Gastrooesophageal reflux disease
     Route: 048
     Dates: start: 1999, end: 2012
  5. PRILOSEC [Suspect]
     Active Substance: OMEPRAZOLE MAGNESIUM
     Indication: Gastrooesophageal reflux disease
     Dosage: GENERIC
     Route: 065
     Dates: start: 2003
  6. DEXILANT [Suspect]
     Active Substance: DEXLANSOPRAZOLE
     Indication: Gastrooesophageal reflux disease
     Route: 065
     Dates: start: 1999, end: 2012
  7. DEXILANT [Suspect]
     Active Substance: DEXLANSOPRAZOLE
     Indication: Gastrooesophageal reflux disease
     Route: 065
     Dates: start: 2009, end: 2012
  8. PREVACID [Suspect]
     Active Substance: LANSOPRAZOLE
     Indication: Gastrooesophageal reflux disease
     Route: 065
     Dates: start: 1999, end: 2012
  9. PREVACID [Suspect]
     Active Substance: LANSOPRAZOLE
     Indication: Gastrooesophageal reflux disease
     Dosage: GENERIC
     Route: 065
     Dates: start: 2010
  10. GABAPENTIN [Concomitant]
     Active Substance: GABAPENTIN
  11. EPINEPHRINE [Concomitant]
     Active Substance: EPINEPHRINE
  12. ALBUTEROL [Concomitant]
     Active Substance: ALBUTEROL
  13. ASPIRIN [Concomitant]
     Active Substance: ASPIRIN
  14. ATENOLOL [Concomitant]
     Active Substance: ATENOLOL
  15. ATORVASTATIN [Concomitant]
     Active Substance: ATORVASTATIN
  16. CYCLOBENZAPRINE [Concomitant]
     Active Substance: CYCLOBENZAPRINE
  17. FISH OIL [Concomitant]
     Active Substance: FISH OIL
  18. MIRTAZAPINE [Concomitant]
     Active Substance: MIRTAZAPINE
  19. PAROXETINE [Concomitant]
     Active Substance: PAROXETINE
  20. TIOTROPIUM [Concomitant]
     Active Substance: TIOTROPIUM
  21. DULOXETINE [Concomitant]
     Active Substance: DULOXETINE
  22. LORATADINE [Concomitant]
     Active Substance: LORATADINE
  23. VARENICLINE [Concomitant]
     Active Substance: VARENICLINE
  24. CEFAZOLIN [Concomitant]
     Active Substance: CEFAZOLIN
  25. POTASSIUM CHLORIDE [Concomitant]
     Active Substance: POTASSIUM CHLORIDE
  26. SIMVASTATIN [Concomitant]
     Active Substance: SIMVASTATIN
  27. NICOTINE [Concomitant]
     Active Substance: NICOTINE
  28. LISINOPRIL [Concomitant]
     Active Substance: LISINOPRIL
  29. SODIUM CHLORIDE [Concomitant]
     Active Substance: SODIUM CHLORIDE
  30. ROSUVASTATIN [Concomitant]
     Active Substance: ROSUVASTATIN
  31. SERTRALINE [Concomitant]
     Active Substance: SERTRALINE HYDROCHLORIDE
  32. GUAIFENESIN [Concomitant]
     Active Substance: GUAIFENESIN
  33. PSEUDOEPHEDRINE [Concomitant]
     Active Substance: PSEUDOEPHEDRINE
  34. IPRATROPIUM [Concomitant]
     Active Substance: IPRATROPIUM
  35. FOLIC ACID [Concomitant]
     Active Substance: FOLIC ACID
  36. MORPHINE [Concomitant]
     Active Substance: MORPHINE
  37. CETIRIZINE [Concomitant]
     Active Substance: CETIRIZINE HYDROCHLORIDE
  38. FEXOFENADINE [Concomitant]
     Active Substance: FEXOFENADINE HYDROCHLORIDE
  39. DEXLANSOPRAZOLE [Concomitant]
     Active Substance: DEXLANSOPRAZOLE
  40. HYDROXYZINE PAMOATE [Concomitant]
     Active Substance: HYDROXYZINE PAMOATE

REACTIONS (3)
  - Chronic kidney disease [Not Recovered/Not Resolved]
  - Acute kidney injury [Not Recovered/Not Resolved]
  - Renal failure [Unknown]

NARRATIVE: CASE EVENT DATE: 20060101
